FAERS Safety Report 5589647-7 (Version None)
Quarter: 2008Q1

REPORT INFORMATION
  Report Type: 
  Country: None (occurrence: None)
  Receive Date: 20080114
  Receipt Date: 20080103
  Transmission Date: 20080703
  Serious: Yes (Other)
  Sender: FDA-Public Use
  Company Number: B0361339A

PATIENT
  Age: 16 Year
  Sex: Female

DRUGS (4)
  1. PAROXETINE HYDROCHLORIDE [Suspect]
     Route: 065
     Dates: start: 19990122
  2. PAROXETINE HYDROCHLORIDE [Suspect]
     Route: 065
  3. DIAZEPAM [Concomitant]
     Dates: start: 20040929
  4. SERTRALINE [Concomitant]
     Dates: start: 20031126

REACTIONS (10)
  - AGGRESSION [None]
  - ANXIETY [None]
  - DIZZINESS [None]
  - DRUG WITHDRAWAL SYNDROME [None]
  - HYPERHIDROSIS [None]
  - NIGHTMARE [None]
  - SLEEP DISORDER [None]
  - SUICIDAL IDEATION [None]
  - VISION BLURRED [None]
  - WEIGHT DECREASED [None]
